FAERS Safety Report 22287529 (Version 1)
Quarter: 2023Q2

REPORT INFORMATION
  Report Type: Report from Study
  Country: BR (occurrence: BR)
  Receive Date: 20230505
  Receipt Date: 20230505
  Transmission Date: 20230721
  Serious: Yes (Hospitalization, Congenital Anomaly, Other)
  Sender: FDA-Public Use
  Company Number: BR-JNJFOC-20230511336

PATIENT
  Sex: Female

DRUGS (1)
  1. REMICADE [Suspect]
     Active Substance: INFLIXIMAB
     Indication: Crohn^s disease
     Dosage: 4 BOTTLES
     Route: 064

REACTIONS (3)
  - Pericardial effusion [Unknown]
  - Bronchiolitis [Unknown]
  - Foetal exposure during pregnancy [Unknown]
